FAERS Safety Report 7075171-1 (Version None)
Quarter: 2010Q4

REPORT INFORMATION
  Report Type: 
  Country: None (occurrence: None)
  Receive Date: 20101029
  Receipt Date: 20100416
  Transmission Date: 20110411
  Serious: No
  Sender: FDA-Public Use
  Company Number: US-WYE-H14763210

PATIENT
  Age: 26 Year
  Sex: Male
  Weight: 108.96 kg

DRUGS (1)
  1. ALAVERT D-12 [Suspect]
     Indication: HYPERSENSITIVITY
     Dosage: ONE TABLET 1 TIME
     Route: 048
     Dates: start: 20100416, end: 20100416

REACTIONS (4)
  - ABDOMINAL PAIN UPPER [None]
  - ASTHENIA [None]
  - MALAISE [None]
  - SOMNOLENCE [None]
